FAERS Safety Report 6550880-9 (Version None)
Quarter: 2010Q1

REPORT INFORMATION
  Report Type: 
  Country: None (occurrence: None)
  Receive Date: 20100125
  Receipt Date: 20100119
  Transmission Date: 20100710
  Serious: Yes (Other)
  Sender: FDA-Public Use
  Company Number: US-JNJCH-2010000866

PATIENT
  Age: 19 Year
  Sex: Female
  Weight: 47.6 kg

DRUGS (1)
  1. LUBRIDERM INTENSE SKIN REPAIR ITCH RELIEF BODY LOTION [Suspect]
     Indication: SKIN DISORDER
     Dosage: TEXT:UNSPECIFIED ONCE A DAY
     Route: 061
     Dates: start: 20091229, end: 20100112

REACTIONS (5)
  - APPLICATION SITE ERYTHEMA [None]
  - APPLICATION SITE EXFOLIATION [None]
  - APPLICATION SITE INFLAMMATION [None]
  - APPLICATION SITE PAIN [None]
  - APPLICATION SITE PRURITUS [None]
